FAERS Safety Report 5601198-X (Version None)
Quarter: 2008Q1

REPORT INFORMATION
  Report Type: 
  Country: None (occurrence: None)
  Receive Date: 20080124
  Receipt Date: 20080118
  Transmission Date: 20080703
  Serious: Yes (Hospitalization)
  Sender: FDA-Public Use
  Company Number: FR-JNJFOC-20080104701

PATIENT
  Age: 78 Year
  Sex: Female

DRUGS (4)
  1. REMINYL LP [Suspect]
     Indication: DRUG USE FOR UNKNOWN INDICATION
     Route: 048
  2. ESIDRIX [Suspect]
     Indication: DIURETIC THERAPY
     Route: 048
  3. SEROPRAM [Suspect]
     Indication: DRUG USE FOR UNKNOWN INDICATION
     Route: 048
  4. SERMION [Suspect]
     Indication: DRUG USE FOR UNKNOWN INDICATION
     Route: 048

REACTIONS (2)
  - ASTHENIA [None]
  - HYPERCALCAEMIA [None]
